FAERS Safety Report 6382877-6 (Version None)
Quarter: 2009Q3

REPORT INFORMATION
  Report Type: 
  Country: None (occurrence: None)
  Receive Date: 20090928
  Receipt Date: 20090928
  Transmission Date: 20100115
  Serious: No
  Sender: FDA-Public Use
  Company Number: None

PATIENT

DRUGS (2)
  1. GENTAMICIN [Suspect]
     Indication: ANTIBIOTIC PROPHYLAXIS
     Dosage: THIN RIBBON DAILY INTRAOCULAR
     Route: 031
     Dates: start: 20090918, end: 20090919
  2. GENTAMICIN [Suspect]
     Indication: EYE INFECTION
     Dosage: THIN RIBBON DAILY INTRAOCULAR
     Route: 031
     Dates: start: 20090918, end: 20090919

REACTIONS (3)
  - DERMATITIS CONTACT [None]
  - ERYTHEMA OF EYELID [None]
  - HERPES VIRUS INFECTION [None]
